FAERS Safety Report 7265030-3 (Version None)
Quarter: 2011Q1

REPORT INFORMATION
  Report Type: 
  Country: None (occurrence: None)
  Receive Date: 20110131
  Receipt Date: 20110126
  Transmission Date: 20110831
  Serious: Yes (Hospitalization)
  Sender: FDA-Public Use
  Company Number: US-ABBOTT-10P-163-0693234-00

PATIENT
  Sex: Male
  Weight: 95.794 kg

DRUGS (24)
  1. PREVACID [Concomitant]
     Indication: GASTROOESOPHAGEAL REFLUX DISEASE
     Route: 048
  2. FOLIC ACID [Concomitant]
     Indication: PRODUCT USED FOR UNKNOWN INDICATION
     Route: 048
  3. HUMIRA [Suspect]
     Route: 058
     Dates: start: 20100101, end: 20100801
  4. CHOLECALCIFEROL [Concomitant]
     Indication: PRODUCT USED FOR UNKNOWN INDICATION
     Route: 048
  5. HUMIRA [Suspect]
     Indication: RHEUMATOID ARTHRITIS
     Route: 058
     Dates: start: 20080601, end: 20100101
  6. XANAX XR [Concomitant]
     Indication: PRODUCT USED FOR UNKNOWN INDICATION
     Route: 048
  7. PROPRANOLOL [Concomitant]
     Indication: PRODUCT USED FOR UNKNOWN INDICATION
     Dosage: 2 TABS TWICE A DAY, PRN
     Route: 048
  8. HUMIRA [Suspect]
     Route: 058
     Dates: start: 20100801
  9. LOPID [Concomitant]
     Indication: BLOOD TRIGLYCERIDES INCREASED
     Route: 048
  10. OXYCODONE HCL [Concomitant]
     Indication: BREAKTHROUGH PAIN
     Dosage: 1 QD, PRN
     Route: 048
  11. BENTYL [Concomitant]
     Indication: CROHN'S DISEASE
     Route: 048
  12. URSODIOL [Concomitant]
     Indication: CROHN'S DISEASE
     Dosage: 300 MG, 2 QD
     Route: 048
  13. LOPID [Concomitant]
     Indication: BLOOD CHOLESTEROL INCREASED
  14. ACETAMINOPHEN AND HYDROCODONE BITARTRATE [Concomitant]
     Indication: ARTHRALGIA
     Dosage: 7.5/500 MG TABS, 1-2 Q 4-6 HRS PRN
     Route: 048
  15. PREVACID [Concomitant]
     Indication: HIATUS HERNIA
  16. ZYRTEC [Concomitant]
     Indication: HYPERSENSITIVITY
     Route: 048
  17. PAXIL [Concomitant]
     Indication: PRODUCT USED FOR UNKNOWN INDICATION
     Route: 048
  18. URSODIOL [Concomitant]
     Indication: PROPHYLAXIS
  19. TESTOSTERONE CYPIONATE [Concomitant]
     Indication: PRODUCT USED FOR UNKNOWN INDICATION
     Dosage: OIL, 1 IN 2 WEEKS
  20. VITAMIN E [Concomitant]
     Indication: PRODUCT USED FOR UNKNOWN INDICATION
     Route: 048
  21. HUMIRA [Suspect]
     Indication: CROHN'S DISEASE
     Route: 058
     Dates: start: 20100801, end: 20100801
  22. ASACOL [Concomitant]
     Indication: CROHN'S DISEASE
     Dosage: 400 MG, 2 BID
     Route: 048
  23. URSODIOL [Concomitant]
     Indication: LIVER DISORDER
  24. MULTI-VITAMIN [Concomitant]
     Indication: VITAMIN SUPPLEMENTATION
     Route: 048

REACTIONS (9)
  - RENAL CYST [None]
  - LABORATORY TEST ABNORMAL [None]
  - ARTHRALGIA [None]
  - BURSITIS [None]
  - FREQUENT BOWEL MOVEMENTS [None]
  - MUSCULOSKELETAL PAIN [None]
  - DRUG EFFECT DECREASED [None]
  - INAPPROPRIATE SCHEDULE OF DRUG ADMINISTRATION [None]
  - HAEMATOCHEZIA [None]
